FAERS Safety Report 17857169 (Version 2)
Quarter: 2020Q2

REPORT INFORMATION
  Report Type: Spontaneous
  Country: FR (occurrence: FR)
  Receive Date: 20200603
  Receipt Date: 20200615
  Transmission Date: 20200714
  Serious: Yes (Other)
  Sender: FDA-Public Use
  Company Number: FR-PFIZER INC-2020-07992

PATIENT
  Age: 51 Year
  Sex: Male

DRUGS (4)
  1. MEKTOVI [Suspect]
     Active Substance: BINIMETINIB
     Indication: MALIGNANT MELANOMA
     Dosage: 6 TABLETS, 1X/DAY
     Route: 065
     Dates: start: 20200301
  2. BRAFTOVI [Suspect]
     Active Substance: ENCORAFENIB
     Dosage: 6 DF, 1X/DAY
     Route: 065
     Dates: start: 20200316
  3. MEKTOVI [Suspect]
     Active Substance: BINIMETINIB
     Dosage: 6 DF, 1X/DAY
     Route: 065
     Dates: start: 20200316
  4. BRAFTOVI [Suspect]
     Active Substance: ENCORAFENIB
     Indication: MALIGNANT MELANOMA
     Dosage: UNK
     Route: 065
     Dates: start: 20200301

REACTIONS (1)
  - No adverse event [Unknown]
